FAERS Safety Report 16008708 (Version 1)
Quarter: 2019Q1

REPORT INFORMATION
  Report Type: Spontaneous
  Country: IT (occurrence: IT)
  Receive Date: 20190225
  Receipt Date: 20190225
  Transmission Date: 20190418
  Serious: Yes (Disabling)
  Sender: FDA-Public Use
  Company Number: IT-AUROBINDO-AUR-APL-2019-009469

PATIENT

DRUGS (1)
  1. LEVOFLOXACIN FILMCOATED TABLET [Suspect]
     Active Substance: LEVOFLOXACIN
     Indication: UREAPLASMA INFECTION
     Dosage: 500 MILLIGRAM, DAILY
     Route: 048
     Dates: start: 20190201, end: 20190202

REACTIONS (5)
  - Headache [Not Recovered/Not Resolved]
  - Pain in extremity [Not Recovered/Not Resolved]
  - Fatigue [Not Recovered/Not Resolved]
  - Arthralgia [Not Recovered/Not Resolved]
  - Pruritus [Not Recovered/Not Resolved]

NARRATIVE: CASE EVENT DATE: 20190201
